FAERS Safety Report 8791917 (Version 2)
Quarter: 2012Q4

REPORT INFORMATION
  Report Type: Report from Study
  Country: US (occurrence: US)
  Receive Date: 20120918
  Receipt Date: 20121101
  Transmission Date: 20130627
  Serious: Yes (Other)
  Sender: FDA-Public Use
  Company Number: US-ABBOTT-12P-163-0978242-00

PATIENT
  Age: 35 Year
  Sex: Female
  Weight: 63.11 kg

DRUGS (7)
  1. HUMIRA [Suspect]
     Indication: ARTHRALGIA
     Dates: start: 201010, end: 20120824
  2. HUMIRA [Suspect]
     Indication: PYREXIA
     Dates: start: 20120824
  3. HUMIRA [Suspect]
     Indication: PYREXIA
  4. HUMIRA [Suspect]
     Indication: STILL^S DISEASE ADULT ONSET
  5. ADVIL [Concomitant]
     Indication: PAIN
  6. YAZ [Concomitant]
     Indication: CONTRACEPTION
  7. HYDROCHLOROTHIAZIDE [Concomitant]
     Indication: OEDEMA PERIPHERAL
     Dosage: Every day

REACTIONS (14)
  - Ovarian cyst [Recovered/Resolved]
  - Abdominal pain [Recovered/Resolved]
  - Drug ineffective [Unknown]
  - Arthralgia [Unknown]
  - Injection site vesicles [Not Recovered/Not Resolved]
  - Incorrect dose administered [Unknown]
  - Injection site extravasation [Unknown]
  - Injection site vesicles [Recovered/Resolved]
  - Incorrect dose administered [Unknown]
  - Injection site extravasation [Unknown]
  - Injection site vesicles [Recovered/Resolved]
  - Incorrect dose administered [Unknown]
  - Injection site extravasation [Unknown]
  - Pain [Unknown]
